FAERS Safety Report 5100933-7 (Version None)
Quarter: 2006Q3

REPORT INFORMATION
  Report Type: 
  Country: None (occurrence: None)
  Receive Date: 20060731
  Receipt Date: 20060615
  Transmission Date: 20061208
  Serious: No
  Sender: FDA-Public Use
  Company Number: 2006PV015707

PATIENT
  Age: 68 Year
  Sex: Male
  Weight: 155.1302 kg

DRUGS (4)
  1. BYETTA [Suspect]
     Indication: DIABETES MELLITUS NON-INSULIN-DEPENDENT
     Dosage: 5 MCG;BID;SC
     Route: 058
     Dates: start: 20060606
  2. HUMULIN N [Concomitant]
  3. GLUCOVANCE [Concomitant]
  4. ACTOS [Concomitant]

REACTIONS (9)
  - ARTHRALGIA [None]
  - ASTHENIA [None]
  - BLOOD GLUCOSE DECREASED [None]
  - BLOOD GLUCOSE FLUCTUATION [None]
  - BLOOD GLUCOSE INCREASED [None]
  - COLD SWEAT [None]
  - DECREASED APPETITE [None]
  - HYPERHIDROSIS [None]
  - NAUSEA [None]
